FAERS Safety Report 4796703-X (Version None)
Quarter: 2005Q3

REPORT INFORMATION
  Report Type: 
  Country: None (occurrence: None)
  Receive Date: 20050916
  Receipt Date: 20050308
  Transmission Date: 20060218
  Serious: Yes (Hospitalization, Other)
  Sender: FDA-Public Use
  Company Number: US-JNJFOC-20041104126

PATIENT
  Age: 43 Year
  Sex: Female
  Weight: 63.5036 kg

DRUGS (4)
  1. TOPAMAX [Suspect]
     Indication: CONVULSION
     Dosage: 200 MG, 2 IN 1 DAY, ORAL; 250 MG, 2 IN 1 DAY, ORAL
     Route: 048
     Dates: start: 20020101, end: 20040101
  2. TOPAMAX [Suspect]
     Indication: CONVULSION
     Dosage: 200 MG, 2 IN 1 DAY, ORAL; 250 MG, 2 IN 1 DAY, ORAL
     Route: 048
     Dates: start: 20021101
  3. DILANTIN [Suspect]
     Indication: EPILEPSY
     Dosage: 330 MG,  IN 1 DAY
  4. PHENOBARBITAL TAB [Concomitant]

REACTIONS (4)
  - ANOREXIA [None]
  - DEPRESSION [None]
  - PSYCHOTIC DISORDER [None]
  - WEIGHT DECREASED [None]
